FAERS Safety Report 5103136-5 (Version None)
Quarter: 2006Q3

REPORT INFORMATION
  Report Type: 
  Country: None (occurrence: None)
  Receive Date: 20060908
  Receipt Date: 20060828
  Transmission Date: 20061208
  Serious: Yes (Hospitalization)
  Sender: FDA-Public Use
  Company Number: 2006067957

PATIENT
  Age: 69 Year
  Sex: Female
  Weight: 54.2 kg

DRUGS (3)
  1. SUTENT [Suspect]
     Indication: RENAL CELL CARCINOMA STAGE UNSPECIFIED
     Dosage: 50 MG (50 MG, 1 IN 1 D),  ORAL
     Route: 048
     Dates: start: 20060510
  2. MELOXICAM (MELOXICAM) [Concomitant]
  3. NIFEDIPINE [Concomitant]

REACTIONS (5)
  - ANOREXIA [None]
  - GAIT DISTURBANCE [None]
  - MALAISE [None]
  - SOMNOLENCE [None]
  - VOMITING [None]
